FAERS Safety Report 21068427 (Version 1)
Quarter: 2022Q3

REPORT INFORMATION
  Report Type: Spontaneous
  Country: ZA (occurrence: ZA)
  Receive Date: 20220712
  Receipt Date: 20220712
  Transmission Date: 20221027
  Serious: Yes (Life-Threatening, Hospitalization)
  Sender: FDA-Public Use
  Company Number: ZA-MYLANLABS-2022M1051271

PATIENT
  Age: 28 Year
  Sex: Male

DRUGS (5)
  1. INSULIN GLARGINE [Suspect]
     Active Substance: INSULIN GLARGINE
     Indication: Shock
     Dosage: UNK, 2U/KG/HOUR (EUGLYCAEMIC INFUSION)
     Route: 065
  2. EPINEPHRINE [Suspect]
     Active Substance: EPINEPHRINE
     Indication: Shock
     Dosage: UNK, DOSING RATE: 1 MICROG/KG/MIN
     Route: 065
  3. CALCIUM [Suspect]
     Active Substance: CALCIUM
     Indication: Shock
     Dosage: UNK
     Route: 065
  4. METHYLENE BLUE [Suspect]
     Active Substance: METHYLENE BLUE
     Indication: Shock
     Dosage: 2 MILLIGRAM/KILOGRAM
     Route: 040
  5. METHYLENE BLUE [Suspect]
     Active Substance: METHYLENE BLUE
     Indication: Shock
     Dosage: INFUSION RATE: 1MG/KG/HOUR

REACTIONS (2)
  - Drug ineffective for unapproved indication [Unknown]
  - Off label use [Unknown]
